FAERS Safety Report 11931261 (Version 4)
Quarter: 2016Q1

REPORT INFORMATION
  Report Type: Spontaneous
  Country: US (occurrence: US)
  Receive Date: 20160120
  Receipt Date: 20160216
  Transmission Date: 20160526
  Serious: Yes (Hospitalization, Other)
  Sender: FDA-Public Use
  Company Number: US-ALEXION PHARMACEUTICALS INC-A201600194

PATIENT
  Sex: Female

DRUGS (4)
  1. CYCLOSPORINE. [Suspect]
     Active Substance: CYCLOSPORINE
     Indication: DYSPNOEA PAROXYSMAL NOCTURNAL
  2. CYCLOSPORINE. [Suspect]
     Active Substance: CYCLOSPORINE
     Indication: APLASTIC ANAEMIA
     Route: 065
  3. SOLIRIS [Suspect]
     Active Substance: ECULIZUMAB
     Dosage: UNK, QW
     Route: 042
  4. SOLIRIS [Suspect]
     Active Substance: ECULIZUMAB
     Indication: PAROXYSMAL NOCTURNAL HAEMOGLOBINURIA
     Dosage: 900 MG, Q2W
     Route: 042
     Dates: start: 20110915

REACTIONS (16)
  - Acute kidney injury [Recovering/Resolving]
  - Arterial haemorrhage [Unknown]
  - Bacterial infection [Unknown]
  - Pancreatitis [Unknown]
  - Fatigue [Unknown]
  - Treatment noncompliance [Unknown]
  - Hepatitis [Unknown]
  - Vomiting [Unknown]
  - Cardiac arrest [Unknown]
  - Renal failure [Not Recovered/Not Resolved]
  - Blood lactate dehydrogenase increased [Not Recovered/Not Resolved]
  - Infection [Unknown]
  - Thrombosis [Not Recovered/Not Resolved]
  - Drug level decreased [Unknown]
  - Inappropriate schedule of drug administration [Unknown]
  - Nausea [Unknown]

NARRATIVE: CASE EVENT DATE: 201601
